FAERS Safety Report 9698945 (Version 1)
Quarter: 2013Q4

REPORT INFORMATION
  Report Type: Spontaneous
  Country: US (occurrence: US)
  Receive Date: 20131120
  Receipt Date: 20131120
  Transmission Date: 20140711
  Serious: Yes (Hospitalization, Other)
  Sender: FDA-Public Use
  Company Number: US-ASTRAZENECA-2013SE84154

PATIENT
  Age: 62 Year
  Sex: Female
  Weight: 83.9 kg

DRUGS (10)
  1. ARIMIDEX [Suspect]
     Indication: BREAST CANCER
     Dosage: UNKNOWN, DAILY
     Route: 048
     Dates: start: 2006, end: 2010
  2. LISINOPRIL [Suspect]
     Indication: RENAL HYPERTENSION
     Route: 048
     Dates: start: 2006
  3. GLIPERIDE [Concomitant]
     Indication: DIABETES MELLITUS
     Route: 048
  4. METFORMIN [Concomitant]
     Indication: DIABETES MELLITUS
     Route: 048
     Dates: start: 2006
  5. GABAPENTIN [Concomitant]
     Indication: NEUROPATHY PERIPHERAL
     Route: 048
  6. JANUVIA [Concomitant]
     Indication: DIABETES MELLITUS
     Route: 048
     Dates: start: 2010
  7. LANTUS INSULIN [Concomitant]
     Indication: DIABETES MELLITUS
     Route: 058
     Dates: start: 2010
  8. HUMULOG [Concomitant]
     Indication: DIABETES MELLITUS
     Route: 058
  9. XYZOL [Concomitant]
     Indication: HYPERSENSITIVITY
     Route: 048
  10. LEVOCETIRIZINE [Concomitant]
     Indication: ALLERGIC RESPIRATORY DISEASE
     Route: 048

REACTIONS (28)
  - Heart rate increased [Unknown]
  - Osteomyelitis [Unknown]
  - Fall [Recovered/Resolved]
  - Blood pressure decreased [Unknown]
  - Foot fracture [Recovered/Resolved]
  - Upper limb fracture [Unknown]
  - Ankle fracture [Recovered/Resolved]
  - Tibia fracture [Recovered/Resolved]
  - Agitation [Unknown]
  - Balance disorder [Unknown]
  - Fall [Recovered/Resolved]
  - Muscle spasms [Not Recovered/Not Resolved]
  - Neuropathic arthropathy [Not Recovered/Not Resolved]
  - Limb discomfort [Not Recovered/Not Resolved]
  - Neuropathy peripheral [Not Recovered/Not Resolved]
  - Dysphagia [Unknown]
  - Dental discomfort [Not Recovered/Not Resolved]
  - Dizziness postural [Not Recovered/Not Resolved]
  - Tooth erosion [Not Recovered/Not Resolved]
  - Dysstasia [Not Recovered/Not Resolved]
  - Dizziness [Not Recovered/Not Resolved]
  - Anger [Unknown]
  - Depression [Unknown]
  - Memory impairment [Unknown]
  - Bone density decreased [Not Recovered/Not Resolved]
  - Arthralgia [Not Recovered/Not Resolved]
  - Drug dose omission [Recovered/Resolved]
  - Impaired work ability [Not Recovered/Not Resolved]
